FAERS Safety Report 5872370-9 (Version None)
Quarter: 2008Q3

REPORT INFORMATION
  Report Type: 
  Country: None (occurrence: None)
  Receive Date: 20080902
  Receipt Date: 20060206
  Transmission Date: 20090109
  Serious: Yes (Hospitalization)
  Sender: FDA-Public Use
  Company Number: 2008AL009352

PATIENT
  Age: 70 Year
  Sex: Male

DRUGS (5)
  1. NIFEDIPINE EXTENDED-RELEASE TABLETS, 30MG (ASALLC) (NIFEDIPINE EXTENDE [Suspect]
     Indication: HYPERTENSION
     Dosage: 30 MG;
  2. DOXAZOSIN MESYLATE [Suspect]
     Indication: HYPERTENSION
     Dosage: 2 MG;
  3. BENDROFLUMETHIAZIDE [Concomitant]
  4. BECLOMETHASONE DIPROPIONATE [Concomitant]
  5. ALBUTEROL SPIROS [Concomitant]

REACTIONS (2)
  - BRADYARRHYTHMIA [None]
  - ORTHOSTATIC HYPOTENSION [None]
